FAERS Safety Report 5126939-X (Version None)
Quarter: 2006Q4

REPORT INFORMATION
  Report Type: 
  Country: None (occurrence: None)
  Receive Date: 20061010
  Receipt Date: 20060928
  Transmission Date: 20070319
  Serious: Yes (Hospitalization, Other)
  Sender: FDA-Public Use
  Company Number: RU-2006-026409

PATIENT
  Age: 75 Year
  Sex: Male
  Weight: 76 kg

DRUGS (1)
  1. FLUDARABINE PHOSPHATE (SH T 586 C)(FLUDARABINE PHOSPHATE (SH T 586 C) [Suspect]
     Indication: CHRONIC LYMPHOCYTIC LEUKAEMIA
     Dosage: 40 MG/M2, CYCLE X 5D, EVERY 28 D, ORAL
     Route: 048
     Dates: start: 20060531

REACTIONS (33)
  - ACUTE SINUSITIS [None]
  - ADHESION [None]
  - ALANINE AMINOTRANSFERASE INCREASED [None]
  - ANGIOPATHY [None]
  - ANGIOSCLEROSIS [None]
  - AORTIC ARTERIOSCLEROSIS [None]
  - ASPARTATE AMINOTRANSFERASE INCREASED [None]
  - BILIRUBIN CONJUGATED INCREASED [None]
  - BLOOD BILIRUBIN INCREASED [None]
  - BLOOD CREATININE ABNORMAL [None]
  - BLOOD GLUCOSE ABNORMAL [None]
  - BUNDLE BRANCH BLOCK [None]
  - BUNDLE BRANCH BLOCK RIGHT [None]
  - CARDIAC DISORDER [None]
  - DIAPHRAGMATIC DISORDER [None]
  - ENCEPHALOPATHY [None]
  - EOSINOPHIL PERCENTAGE DECREASED [None]
  - FIBROSIS [None]
  - HAEMOGLOBIN DECREASED [None]
  - LOBAR PNEUMONIA [None]
  - LUNG INFECTION PSEUDOMONAL [None]
  - LYMPHOCYTE PERCENTAGE INCREASED [None]
  - MONOCYTE PERCENTAGE DECREASED [None]
  - NEUTROPHIL PERCENTAGE DECREASED [None]
  - NEUTROPHIL PERCENTAGE INCREASED [None]
  - NOSOCOMIAL INFECTION [None]
  - PNEUMONIA ESCHERICHIA [None]
  - PROTEIN TOTAL DECREASED [None]
  - PULMONARY FIBROSIS [None]
  - RED BLOOD CELL COUNT DECREASED [None]
  - RESPIRATORY FAILURE [None]
  - SINUS TACHYCARDIA [None]
  - VENTRICULAR HYPERTROPHY [None]
